FAERS Safety Report 4701733-X (Version None)
Quarter: 2005Q2

REPORT INFORMATION
  Report Type: 
  Country: None (occurrence: None)
  Receive Date: 20050627
  Receipt Date: 20050617
  Transmission Date: 20051028
  Serious: Yes (Hospitalization)
  Sender: FDA-Public Use
  Company Number: 2005-06-1087

PATIENT
  Age: 3 Year
  Sex: Female

DRUGS (1)
  1. AERIUS             (DESLORATADINE) SYRUP ' [Suspect]
     Indication: RHINORRHOEA
     Dosage: 2.5 ML QD ORAL
     Route: 048

REACTIONS (2)
  - ASTHENIA [None]
  - CONVULSION [None]
